FAERS Safety Report 8331496-0 (Version None)
Quarter: 2012Q2

REPORT INFORMATION
  Report Type: 
  Country: None (occurrence: None)
  Receive Date: 20120502
  Receipt Date: 20120418
  Transmission Date: 20120825
  Serious: No
  Sender: FDA-Public Use
  Company Number: US-AMGEN-USASP2012024661

PATIENT
  Age: 50 Year
  Sex: Female

DRUGS (2)
  1. ENBREL [Suspect]
     Indication: RHEUMATOID ARTHRITIS
     Dosage: 50 MG, QWK
     Dates: start: 20110506
  2. TREXALL [Concomitant]
     Dosage: 1 MG, UNK
     Dates: start: 20110401

REACTIONS (2)
  - JOINT CREPITATION [None]
  - RHEUMATOID ARTHRITIS [None]
